FAERS Safety Report 13517824 (Version 1)
Quarter: 2017Q2

REPORT INFORMATION
  Report Type: Spontaneous
  Country: US (occurrence: US)
  Receive Date: 20170505
  Receipt Date: 20170505
  Transmission Date: 20170830
  Serious: Yes (Hospitalization)
  Sender: FDA-Public Use
  Company Number: US-LEXICON PHARMACEUTICALS, INC-17-1606-00059

PATIENT
  Age: 70 Year
  Sex: Female

DRUGS (15)
  1. TELOTRISTAT ETHYL [Suspect]
     Active Substance: TELOTRISTAT ETHYL
     Indication: CARCINOID SYNDROME
     Route: 048
     Dates: start: 20170408
  2. METHYLPREDNISOLONE. [Concomitant]
     Active Substance: METHYLPREDNISOLONE
  3. CALCIUM [Concomitant]
     Active Substance: CALCIUM
  4. DELZICOL [Concomitant]
     Active Substance: MESALAMINE
  5. MAGNESIUM [Concomitant]
     Active Substance: MAGNESIUM
  6. HEPARIN [Concomitant]
     Active Substance: HEPARIN SODIUM
  7. OMEPRAZOLE. [Concomitant]
     Active Substance: OMEPRAZOLE
  8. METEPROLOL SUCC ER [Concomitant]
  9. OCTREOTIDE. [Concomitant]
     Active Substance: OCTREOTIDE
  10. CLONIDINE. [Concomitant]
     Active Substance: CLONIDINE
  11. LOPERAMIDE [Concomitant]
     Active Substance: LOPERAMIDE
  12. CHOLESTRAMINE [Concomitant]
  13. TIGAN [Concomitant]
     Active Substance: TRIMETHOBENZAMIDE HYDROCHLORIDE
  14. ACETAMIN [Concomitant]
     Active Substance: ACETAMINOPHEN
  15. PEPCID [Concomitant]
     Active Substance: FAMOTIDINE

REACTIONS (4)
  - Blood potassium decreased [Unknown]
  - Blood magnesium decreased [Unknown]
  - Paraesthesia [Unknown]
  - Blood calcium decreased [Unknown]

NARRATIVE: CASE EVENT DATE: 201704
